FAERS Safety Report 6347318-3 (Version None)
Quarter: 2009Q3

REPORT INFORMATION
  Report Type: 
  Country: None (occurrence: None)
  Receive Date: 20090908
  Receipt Date: 20090908
  Transmission Date: 20100115
  Serious: Yes (Hospitalization)
  Sender: FDA-Public Use
  Company Number: None

PATIENT
  Age: 61 Year
  Sex: Male
  Weight: 62 kg

DRUGS (2)
  1. DAPTOMYCIN [Suspect]
     Indication: CENTRAL NERVOUS SYSTEM INFECTION
     Dosage: 500 MG OTHER IV
     Route: 042
     Dates: start: 20090609, end: 20090619
  2. MOXIFLOXACIN HCL [Suspect]
     Indication: CENTRAL NERVOUS SYSTEM INFECTION
     Dosage: 400 MG EVERYDAY PO
     Route: 048
     Dates: start: 20090609, end: 20090619

REACTIONS (4)
  - EOSINOPHILIA [None]
  - PYREXIA [None]
  - RENAL IMPAIRMENT [None]
  - THROMBOCYTOPENIA [None]
